FAERS Safety Report 24246714 (Version 2)
Quarter: 2024Q4

REPORT INFORMATION
  Report Type: Spontaneous
  Country: GB (occurrence: GB)
  Receive Date: 20240825
  Receipt Date: 20241018
  Transmission Date: 20250114
  Serious: Yes (Life-Threatening, Hospitalization, Other)
  Sender: PFIZER
  Company Number: None

PATIENT
  Age: 58 Year
  Sex: Female
  Weight: 96 kg

DRUGS (20)
  1. METHOTREXATE SODIUM [Interacting]
     Active Substance: METHOTREXATE SODIUM
     Indication: Rheumatoid arthritis
     Dosage: 15 MG, WEEKLY
     Route: 048
     Dates: start: 20240815, end: 20240818
  2. LANSOPRAZOLE [Interacting]
     Active Substance: LANSOPRAZOLE
  3. CYANOCOBALAMIN [Concomitant]
     Active Substance: CYANOCOBALAMIN
     Indication: Anaemia vitamin B12 deficiency
  4. LANTUS [Concomitant]
     Active Substance: INSULIN GLARGINE
  5. POLYETHYLENE GLYCOL 3350\POTASSIUM CHLORIDE\SODIUM BICARBONATE\SODIUM [Concomitant]
     Active Substance: POLYETHYLENE GLYCOL 3350\POTASSIUM CHLORIDE\SODIUM BICARBONATE\SODIUM CHLORIDE
  6. SENNA [Concomitant]
     Active Substance: SENNA LEAF\SENNOSIDES\SENNOSIDES A AND B
  7. RAMIPRIL [Concomitant]
     Active Substance: RAMIPRIL
  8. GABAPENTIN [Concomitant]
     Active Substance: GABAPENTIN
  9. DOCUSATE [Concomitant]
     Active Substance: DOCUSATE
  10. FERROUS FUMARATE [Concomitant]
     Active Substance: FERROUS FUMARATE
  11. METFORMIN [Concomitant]
     Active Substance: METFORMIN HYDROCHLORIDE
  12. ALLOPURINOL [Concomitant]
     Active Substance: ALLOPURINOL
  13. MONTELUKAST [Concomitant]
     Active Substance: MONTELUKAST
  14. ACETAMINOPHEN [Concomitant]
     Active Substance: ACETAMINOPHEN
  15. DULOXETINE [Concomitant]
     Active Substance: DULOXETINE
  16. ATORVASTATIN [Concomitant]
     Active Substance: ATORVASTATIN
  17. RIVAROXABAN [Concomitant]
     Active Substance: RIVAROXABAN
  18. METFORMIN [Concomitant]
     Active Substance: METFORMIN HYDROCHLORIDE
  19. SALBUTAMOL BECLOMETASONA DIPROPIONATO [Concomitant]
  20. CHOLECALCIFEROL [Concomitant]
     Active Substance: CHOLECALCIFEROL

REACTIONS (9)
  - Medication error [Unknown]
  - Acute kidney injury [Not Recovered/Not Resolved]
  - Metabolic acidosis [Unknown]
  - Myalgia [Unknown]
  - Labelled drug-drug interaction medication error [Unknown]
  - Urinary retention [Unknown]
  - Malaise [Unknown]
  - Vomiting [Unknown]
  - Pruritus [Unknown]

NARRATIVE: CASE EVENT DATE: 20240816
